FAERS Safety Report 8988012 (Version 2)
Quarter: 2013Q3

REPORT INFORMATION
  Report Type: Spontaneous
  Country: FR (occurrence: FR)
  Receive Date: 20121227
  Receipt Date: 20130912
  Transmission Date: 20140515
  Serious: Yes (Hospitalization)
  Sender: FDA-Public Use
  Company Number: FR-PFIZER INC-2012328576

PATIENT
  Age: 76 Year
  Sex: Male

DRUGS (19)
  1. CORDARONE [Suspect]
     Dosage: UNK
     Route: 048
  2. KIVEXA [Concomitant]
     Dosage: UNK
  3. LASILIX [Concomitant]
  4. NICOBION [Concomitant]
  5. COVERSYL [Concomitant]
  6. CORVASAL [Concomitant]
  7. ZYLORIC [Concomitant]
  8. DISCOTRINE [Concomitant]
  9. DUPHALAC [Concomitant]
  10. CARDENSIEL [Concomitant]
  11. QUESTRAN [Concomitant]
  12. KARDEGIC [Concomitant]
  13. LIPANTHYL [Concomitant]
  14. SUSTIVA [Concomitant]
  15. SPECIAFOLDINE [Concomitant]
  16. INEXIUM [Concomitant]
  17. DIFFU K [Concomitant]
  18. ORGARAN [Concomitant]
  19. PREVISCAN [Concomitant]
     Dosage: UNK

REACTIONS (5)
  - Cardiac failure [Recovering/Resolving]
  - Atrial fibrillation [Recovering/Resolving]
  - Hyperthyroidism [Recovered/Resolved]
  - Interstitial lung disease [Unknown]
  - Septic shock [Unknown]
